FAERS Safety Report 19454569 (Version 2)
Quarter: 2024Q1

REPORT INFORMATION
  Report Type: Spontaneous
  Country: CA (occurrence: CA)
  Receive Date: 20210623
  Receipt Date: 20240327
  Transmission Date: 20240409
  Serious: Yes (Other)
  Sender: FDA-Public Use
  Company Number: CA-TAKEDA-2021TUS037985

PATIENT

DRUGS (1)
  1. HUMAN IMMUNOGLOBULIN G [Suspect]
     Active Substance: HUMAN IMMUNOGLOBULIN G
     Indication: Viral myocarditis
     Dosage: UNK
     Route: 042

REACTIONS (3)
  - Coombs direct test positive [Unknown]
  - Autoimmune haemolytic anaemia [Unknown]
  - Off label use [Unknown]
